FAERS Safety Report 6101033-X (Version None)
Quarter: 2009Q1

REPORT INFORMATION
  Report Type: 
  Country: None (occurrence: None)
  Receive Date: 20090304
  Receipt Date: 20090226
  Transmission Date: 20090719
  Serious: Yes (Hospitalization)
  Sender: FDA-Public Use
  Company Number: US-ABBOTT-09P-163-0559576-00

PATIENT
  Sex: Female
  Weight: 74.91 kg

DRUGS (6)
  1. HUMIRA [Suspect]
     Indication: CROHN'S DISEASE
     Route: 058
     Dates: start: 20080601, end: 20090129
  2. LEVOXYL [Concomitant]
     Indication: HYPOTHYROIDISM
  3. XIFAXAN [Concomitant]
     Indication: CROHN'S DISEASE
  4. IBUPROFEN [Concomitant]
     Indication: PERICARDITIS
     Dates: start: 20090129
  5. VITAMINS [Concomitant]
     Indication: CROHN'S DISEASE
  6. CIPRO [Concomitant]
     Indication: CROHN'S DISEASE

REACTIONS (5)
  - BLOOD IRON DECREASED [None]
  - COAGULOPATHY [None]
  - MALAISE [None]
  - PERICARDITIS [None]
  - PULMONARY EMBOLISM [None]
